FAERS Safety Report 4374478-6 (Version None)
Quarter: 2004Q2

REPORT INFORMATION
  Report Type: 
  Country: None (occurrence: None)
  Receive Date: 20040602
  Receipt Date: 20040308
  Transmission Date: 20050107
  Serious: No
  Sender: FDA-Public Use
  Company Number: 200414894BWH

PATIENT
  Age: 90 Year
  Sex: Male
  Weight: 83.9154 kg

DRUGS (6)
  1. LEVITRA [Suspect]
     Indication: ERECTILE DYSFUNCTION
     Dosage: 10 MG, ONCE, ORAL
     Route: 048
     Dates: start: 20040307
  2. M.V.I. [Concomitant]
  3. PROSCAR [Concomitant]
  4. ACULAR [Concomitant]
  5. PILOCARPINE [Concomitant]
  6. COSOPT [Concomitant]

REACTIONS (3)
  - DYSURIA [None]
  - ERECTILE DYSFUNCTION [None]
  - MICTURITION URGENCY [None]
